FAERS Safety Report 25940837 (Version 1)
Quarter: 2025Q4

REPORT INFORMATION
  Report Type: Report from Study
  Country: KR (occurrence: KR)
  Receive Date: 20251020
  Receipt Date: 20251020
  Transmission Date: 20260118
  Serious: Yes (Hospitalization)
  Sender: MYLAN
  Company Number: KR-MYLANLABS-2025M1087064

PATIENT
  Age: 64 Year
  Sex: Female

DRUGS (32)
  1. LYRICA [Suspect]
     Active Substance: PREGABALIN
     Indication: Diabetic neuropathy
     Dosage: 1 DOSAGE FORM, BID
     Route: 048
     Dates: start: 20210624, end: 20210803
  2. LYRICA [Suspect]
     Active Substance: PREGABALIN
     Dosage: 1 DOSAGE FORM, BID
     Dates: start: 20210624, end: 20210803
  3. LYRICA [Suspect]
     Active Substance: PREGABALIN
     Dosage: 1 DOSAGE FORM, BID
     Dates: start: 20210624, end: 20210803
  4. LYRICA [Suspect]
     Active Substance: PREGABALIN
     Dosage: 1 DOSAGE FORM, BID
     Route: 048
     Dates: start: 20210624, end: 20210803
  5. LYRICA [Suspect]
     Active Substance: PREGABALIN
     Dosage: UNK
     Route: 065
  6. LYRICA [Suspect]
     Active Substance: PREGABALIN
     Dosage: UNK
  7. LYRICA [Suspect]
     Active Substance: PREGABALIN
     Dosage: UNK
  8. LYRICA [Suspect]
     Active Substance: PREGABALIN
     Dosage: UNK
     Route: 065
  9. PREGABALIN [Suspect]
     Active Substance: PREGABALIN
     Indication: Diabetic neuropathy
     Dosage: 1 DOSAGE FORM, QD
     Dates: start: 20210804, end: 20210907
  10. PREGABALIN [Suspect]
     Active Substance: PREGABALIN
     Dosage: 1 DOSAGE FORM, QD
     Dates: start: 20210804, end: 20210907
  11. PREGABALIN [Suspect]
     Active Substance: PREGABALIN
     Dosage: 1 DOSAGE FORM, QD
     Route: 048
     Dates: start: 20210804, end: 20210907
  12. PREGABALIN [Suspect]
     Active Substance: PREGABALIN
     Dosage: 1 DOSAGE FORM, QD
     Route: 048
     Dates: start: 20210804, end: 20210907
  13. PREGABALIN [Suspect]
     Active Substance: PREGABALIN
     Dosage: UNK
  14. PREGABALIN [Suspect]
     Active Substance: PREGABALIN
     Dosage: UNK
  15. PREGABALIN [Suspect]
     Active Substance: PREGABALIN
     Dosage: UNK
     Route: 065
  16. PREGABALIN [Suspect]
     Active Substance: PREGABALIN
     Dosage: UNK
     Route: 065
  17. EZETIMIBE\ROSUVASTATIN CALCIUM [Concomitant]
     Active Substance: EZETIMIBE\ROSUVASTATIN CALCIUM
     Indication: Dyslipidaemia
     Dosage: 1 DOSAGE FORM, QD
     Dates: start: 20181022
  18. EZETIMIBE\ROSUVASTATIN CALCIUM [Concomitant]
     Active Substance: EZETIMIBE\ROSUVASTATIN CALCIUM
     Dosage: 1 DOSAGE FORM, QD
     Route: 048
     Dates: start: 20181022
  19. EZETIMIBE\ROSUVASTATIN CALCIUM [Concomitant]
     Active Substance: EZETIMIBE\ROSUVASTATIN CALCIUM
     Dosage: 1 DOSAGE FORM, QD
     Route: 048
     Dates: start: 20181022
  20. EZETIMIBE\ROSUVASTATIN CALCIUM [Concomitant]
     Active Substance: EZETIMIBE\ROSUVASTATIN CALCIUM
     Dosage: 1 DOSAGE FORM, QD
     Dates: start: 20181022
  21. LAFUTIDINE [Concomitant]
     Active Substance: LAFUTIDINE
     Indication: Epigastric discomfort
     Dosage: 1 DOSAGE FORM, BID
     Dates: start: 20200227
  22. LAFUTIDINE [Concomitant]
     Active Substance: LAFUTIDINE
     Dosage: 1 DOSAGE FORM, BID
     Route: 048
     Dates: start: 20200227
  23. LAFUTIDINE [Concomitant]
     Active Substance: LAFUTIDINE
     Dosage: 1 DOSAGE FORM, BID
     Route: 048
     Dates: start: 20200227
  24. LAFUTIDINE [Concomitant]
     Active Substance: LAFUTIDINE
     Dosage: 1 DOSAGE FORM, BID
     Dates: start: 20200227
  25. THIOCTIC ACID TROMETHAMINE [Concomitant]
     Active Substance: THIOCTIC ACID TROMETHAMINE
     Dosage: 1 DOSAGE FORM, QD
     Dates: start: 20180418
  26. THIOCTIC ACID TROMETHAMINE [Concomitant]
     Active Substance: THIOCTIC ACID TROMETHAMINE
     Dosage: 1 DOSAGE FORM, QD
     Route: 048
     Dates: start: 20180418
  27. THIOCTIC ACID TROMETHAMINE [Concomitant]
     Active Substance: THIOCTIC ACID TROMETHAMINE
     Dosage: 1 DOSAGE FORM, QD
     Route: 048
     Dates: start: 20180418
  28. THIOCTIC ACID TROMETHAMINE [Concomitant]
     Active Substance: THIOCTIC ACID TROMETHAMINE
     Dosage: 1 DOSAGE FORM, QD
     Dates: start: 20180418
  29. PREGABALIN [Concomitant]
     Active Substance: PREGABALIN
     Dosage: 1 DOSAGE FORM, QD
     Dates: start: 20200528, end: 20210623
  30. PREGABALIN [Concomitant]
     Active Substance: PREGABALIN
     Dosage: 1 DOSAGE FORM, QD
     Route: 048
     Dates: start: 20200528, end: 20210623
  31. PREGABALIN [Concomitant]
     Active Substance: PREGABALIN
     Dosage: 1 DOSAGE FORM, QD
     Route: 048
     Dates: start: 20200528, end: 20210623
  32. PREGABALIN [Concomitant]
     Active Substance: PREGABALIN
     Dosage: 1 DOSAGE FORM, QD
     Dates: start: 20200528, end: 20210623

REACTIONS (1)
  - Cholangitis [Recovered/Resolved]

NARRATIVE: CASE EVENT DATE: 20210819
